FAERS Safety Report 9368896 (Version 4)
Quarter: 2013Q4

REPORT INFORMATION
  Report Type: Spontaneous
  Country: JP (occurrence: None)
  Receive Date: 20130624
  Receipt Date: 20131001
  Transmission Date: 20140711
  Serious: Yes (Death, Other)
  Sender: FDA-Public Use
  Company Number: ADR-2013-01041

PATIENT
  Age: 63 Year
  Sex: Female

DRUGS (1)
  1. GABALON INTRATHECAL [Suspect]
     Indication: CEREBROVASCULAR ACCIDENT
     Dates: start: 20090126, end: 20130519

REACTIONS (1)
  - Cardio-respiratory arrest [None]
